FAERS Safety Report 9223781 (Version 1)
Quarter: 2013Q2

REPORT INFORMATION
  Report Type: Spontaneous
  Country: US (occurrence: US)
  Receive Date: 20130410
  Receipt Date: 20130410
  Transmission Date: 20140414
  Serious: No
  Sender: FDA-Public Use
  Company Number: US-ASTRAZENECA-2013SE20486

PATIENT
  Sex: Female

DRUGS (1)
  1. NEXIUM [Suspect]
     Dosage: UNKNOWN DOSE, DAILY
     Route: 065

REACTIONS (3)
  - Osteoporosis [Unknown]
  - Anxiety [Unknown]
  - Intentional drug misuse [Unknown]
